FAERS Safety Report 19090087 (Version 1)
Quarter: 2021Q2

REPORT INFORMATION
  Report Type: Spontaneous
  Country: US (occurrence: US)
  Receive Date: 20210404
  Receipt Date: 20210404
  Transmission Date: 20210717
  Serious: Yes (Other)
  Sender: FDA-Public Use
  Company Number: US-TEVA-2021-US-1895862

PATIENT
  Age: 71 Year
  Sex: Male

DRUGS (1)
  1. TEVA NEFAZODONE HYDROCHLORIDE [Suspect]
     Active Substance: NEFAZODONE HYDROCHLORIDE
     Indication: DEPRESSION
     Route: 065

REACTIONS (6)
  - Retroperitoneal fibrosis [Not Recovered/Not Resolved]
  - Fatigue [Recovered/Resolved]
  - Erythema [Unknown]
  - Lacrimation increased [Recovered/Resolved]
  - Weight decreased [Recovered/Resolved]
  - Product dose omission issue [Unknown]
